FAERS Safety Report 9402682 (Version 1)
Quarter: 2013Q3

REPORT INFORMATION
  Report Type: Spontaneous
  Country: IT (occurrence: IT)
  Receive Date: 20130716
  Receipt Date: 20130716
  Transmission Date: 20140515
  Serious: Yes (Life-Threatening, Hospitalization)
  Sender: FDA-Public Use
  Company Number: PHHY2013IT074170

PATIENT
  Age: 31 Year
  Sex: Male

DRUGS (5)
  1. ALLOPURINOL [Suspect]
     Indication: HYPERURICAEMIA
  2. RIFAMPICIN [Concomitant]
     Indication: PULMONARY TUBERCULOSIS
  3. ISONIAZID [Concomitant]
     Indication: PULMONARY TUBERCULOSIS
  4. ETHAMBUTOL [Concomitant]
     Indication: PULMONARY TUBERCULOSIS
  5. PYRAZINAMID [Concomitant]
     Indication: PULMONARY TUBERCULOSIS

REACTIONS (14)
  - Vasculitis cerebral [Recovered/Resolved]
  - Gaze palsy [Recovered/Resolved]
  - Extensor plantar response [Recovered/Resolved]
  - Hemiplegia [Recovered/Resolved]
  - Hyperreflexia [Recovered/Resolved]
  - Coma [Recovered/Resolved]
  - Drug reaction with eosinophilia and systemic symptoms [Recovered/Resolved]
  - Hyperpyrexia [Recovered/Resolved]
  - Dermatitis exfoliative [Recovered/Resolved]
  - Somnolence [Recovered/Resolved]
  - Rash [Recovered/Resolved]
  - Skin discolouration [Recovered/Resolved]
  - Lymphadenopathy [Recovered/Resolved]
  - Hepatitis cholestatic [Unknown]
